FAERS Safety Report 5519017-9 (Version None)
Quarter: 2007Q4

REPORT INFORMATION
  Report Type: 
  Country: None (occurrence: None)
  Receive Date: 20071116
  Receipt Date: 20071106
  Transmission Date: 20080405
  Serious: Yes (Hospitalization)
  Sender: FDA-Public Use
  Company Number: FR-WYE-G00569907

PATIENT
  Sex: Female

DRUGS (11)
  1. EFFEXOR XR [Suspect]
     Route: 048
     Dates: end: 20070301
  2. EFFEXOR XR [Suspect]
     Route: 048
     Dates: start: 20070301, end: 20070401
  3. EFFEXOR XR [Suspect]
     Route: 048
     Dates: start: 20070401, end: 20070627
  4. PLAVIX [Concomitant]
     Route: 048
     Dates: start: 20070301
  5. TENORMIN [Concomitant]
     Route: 048
     Dates: start: 20070301
  6. NITROGLYCERIN [Concomitant]
     Dosage: IF NECESSARY
     Dates: start: 20070301
  7. KARDEGIC [Concomitant]
     Dates: start: 20070301
  8. XANAX [Concomitant]
     Dates: start: 20070301
  9. TAHOR [Concomitant]
     Dates: start: 20070301, end: 20070401
  10. INEXIUM [Concomitant]
     Dosage: UNKNOWN DOSE 1 TIME PER DAY
  11. PERINDOPRIL ERBUMINE [Concomitant]
     Route: 048
     Dates: start: 20070301

REACTIONS (9)
  - ABDOMINAL PAIN LOWER [None]
  - BLOOD LACTATE DEHYDROGENASE INCREASED [None]
  - GAMMA-GLUTAMYLTRANSFERASE INCREASED [None]
  - HEPATIC STEATOSIS [None]
  - HEPATITIS ACUTE [None]
  - HEPATOMEGALY [None]
  - LIVER FUNCTION TEST ABNORMAL [None]
  - MYOCARDIAL INFARCTION [None]
  - PROTHROMBIN TIME RATIO DECREASED [None]
